FAERS Safety Report 17507923 (Version 1)
Quarter: 2020Q1

REPORT INFORMATION
  Report Type: Spontaneous
  Country: JP (occurrence: JP)
  Receive Date: 20200306
  Receipt Date: 20200306
  Transmission Date: 20200409
  Serious: Yes (Other)
  Sender: FDA-Public Use
  Company Number: NVSJ2020JP002680

PATIENT
  Sex: Male

DRUGS (1)
  1. EQUMET [Suspect]
     Active Substance: METFORMIN HYDROCHLORIDE\VILDAGLIPTIN
     Indication: TYPE 2 DIABETES MELLITUS
     Dosage: 1 DF(METFORMIN 500MG, VILDAGLIPTIN 50MG), UNK
     Route: 048

REACTIONS (3)
  - Blood glucose increased [Unknown]
  - Pemphigoid [Not Recovered/Not Resolved]
  - Cutaneous symptom [Unknown]

NARRATIVE: CASE EVENT DATE: 201911
